FAERS Safety Report 21303216 (Version 1)
Quarter: 2022Q3

REPORT INFORMATION
  Report Type: Spontaneous
  Country: US (occurrence: None)
  Receive Date: 20220907
  Receipt Date: 20220907
  Transmission Date: 20221027
  Serious: Yes (Life-Threatening)
  Sender: FDA-Public Use
  Company Number: None

PATIENT
  Age: 45 Year
  Sex: Female
  Weight: 67.5 kg

DRUGS (2)
  1. FENTANYL [Suspect]
     Active Substance: FENTANYL
     Indication: Colonoscopy
     Dates: start: 20220906, end: 20220906
  2. MIDAZOLAM [Suspect]
     Active Substance: MIDAZOLAM

REACTIONS (2)
  - Apnoea [None]
  - Vomiting [None]

NARRATIVE: CASE EVENT DATE: 20220906
